FAERS Safety Report 4565543-9 (Version None)
Quarter: 2005Q1

REPORT INFORMATION
  Report Type: 
  Country: None (occurrence: None)
  Receive Date: 20050126
  Receipt Date: 20050106
  Transmission Date: 20050727
  Serious: Yes (Other)
  Sender: FDA-Public Use
  Company Number: USA041286704

PATIENT
  Age: 78 Year
  Sex: Male

DRUGS (1)
  1. FORTEO [Suspect]
     Indication: OSTEOPOROSIS
     Dates: start: 20040101

REACTIONS (3)
  - LYMPHADENOPATHY [None]
  - NON-HODGKIN'S LYMPHOMA RECURRENT [None]
  - PHARMACEUTICAL PRODUCT COMPLAINT [None]
